FAERS Safety Report 7813060-2 (Version None)
Quarter: 2011Q4

REPORT INFORMATION
  Report Type: 
  Country: None (occurrence: None)
  Receive Date: 20111013
  Receipt Date: 20111004
  Transmission Date: 20120403
  Serious: Yes (Hospitalization, Other)
  Sender: FDA-Public Use
  Company Number: PHHY2011US66162

PATIENT
  Sex: Male

DRUGS (4)
  1. GLEEVEC [Suspect]
     Dosage: 400 MG, QD
     Route: 048
     Dates: start: 20110218
  2. MERCAPTOPURINE [Concomitant]
     Dosage: 5 DAILY
  3. GLEEVEC [Suspect]
     Indication: ACUTE LYMPHOCYTIC LEUKAEMIA
     Dosage: 600 MG, DAILY
  4. PREDNISONE [Concomitant]
     Dosage: 2 X DAILY, DAYS 1-5 OF EACH MONTH
     Route: 048

REACTIONS (5)
  - VOMITING [None]
  - FEBRILE NEUTROPENIA [None]
  - VIRAL INFECTION [None]
  - NAUSEA [None]
  - THROMBOCYTOPENIA [None]
